FAERS Safety Report 7657804-1 (Version None)
Quarter: 2011Q3

REPORT INFORMATION
  Report Type: 
  Country: None (occurrence: None)
  Receive Date: 20110805
  Receipt Date: 20070404
  Transmission Date: 20111222
  Serious: No
  Sender: FDA-Public Use
  Company Number: US-BIOGENIDEC-2007BI007464

PATIENT
  Age: 48 Year
  Sex: Male

DRUGS (2)
  1. TYSABRI [Suspect]
     Route: 042
     Dates: start: 20110614
  2. TYSABRI [Suspect]
     Indication: MULTIPLE SCLEROSIS
     Route: 042
     Dates: start: 20070125, end: 20070403

REACTIONS (16)
  - PARAESTHESIA [None]
  - FATIGUE [None]
  - EAR PRURITUS [None]
  - SENSORY DISTURBANCE [None]
  - ANXIETY [None]
  - URTICARIA [None]
  - DYSPNOEA [None]
  - EYE SWELLING [None]
  - CHEILITIS [None]
  - HYPERHIDROSIS [None]
  - HYPERSENSITIVITY [None]
  - MUSCULOSKELETAL DISORDER [None]
  - LIP SWELLING [None]
  - FEELING HOT [None]
  - HYPOAESTHESIA [None]
  - RASH [None]
